FAERS Safety Report 25890906 (Version 1)
Quarter: 2025Q4

REPORT INFORMATION
  Report Type: Spontaneous
  Country: US (occurrence: US)
  Receive Date: 20251007
  Receipt Date: 20251007
  Transmission Date: 20260118
  Serious: No
  Sender: PFIZER
  Company Number: US-PFIZER INC-202500196672

PATIENT
  Age: 85 Year
  Sex: Female
  Weight: 52.16 kg

DRUGS (1)
  1. DILTIAZEM HYDROCHLORIDE [Suspect]
     Active Substance: DILTIAZEM HYDROCHLORIDE
     Dosage: 180 MG

REACTIONS (2)
  - Skin discolouration [Unknown]
  - Pruritus [Unknown]
